FAERS Safety Report 19195536 (Version 1)
Quarter: 2021Q2

REPORT INFORMATION
  Report Type: Other
  Country: DE (occurrence: DE)
  Receive Date: 20210429
  Receipt Date: 20210429
  Transmission Date: 20210717
  Serious: Yes (Death, Other)
  Sender: FDA-Public Use
  Company Number: DE-LUPIN PHARMACEUTICALS INC.-2021-05544

PATIENT
  Age: 35 Year
  Sex: Female
  Weight: 80 kg

DRUGS (9)
  1. BIPRETERAX N [Interacting]
     Active Substance: INDAPAMIDE\PERINDOPRIL ARGININE
     Indication: HYPERTENSIVE CRISIS
  2. SOLIAN [Interacting]
     Active Substance: AMISULPRIDE
     Indication: RESTLESSNESS
  3. QUETIAPINE. [Suspect]
     Active Substance: QUETIAPINE
     Indication: ACUTE PSYCHOSIS
     Dosage: 300 MILLIGRAM, QD (0?0?0?1)
     Route: 048
     Dates: start: 2021
  4. BIPRETERAX N [Interacting]
     Active Substance: INDAPAMIDE\PERINDOPRIL ARGININE
     Indication: ESSENTIAL HYPERTENSION
     Dosage: 5 MG / 1,25 MG 1?0?0?0
     Route: 048
     Dates: start: 20140913
  5. PROMETHAZINE [Interacting]
     Active Substance: PROMETHAZINE HYDROCHLORIDE
     Indication: ACUTE PSYCHOSIS
     Dosage: 25 MG 1 HOUR MAX 44X / 24 H 4 H
     Route: 048
     Dates: start: 20200731
  6. METOPROLOL SUCCINATE. [Interacting]
     Active Substance: METOPROLOL SUCCINATE
     Indication: ESSENTIAL HYPERTENSION
     Dosage: 23.5 MILLIGRAM, QD (1?0?0?0)
     Route: 048
     Dates: start: 20140913
  7. SOLIAN [Interacting]
     Active Substance: AMISULPRIDE
     Indication: ANXIETY
     Dosage: 100 MILLIGRAM, BID (1?0?1)
     Route: 048
     Dates: start: 20200731
  8. SOLIAN [Interacting]
     Active Substance: AMISULPRIDE
     Indication: SLEEP DISORDER
  9. METOPROLOL SUCCINATE. [Interacting]
     Active Substance: METOPROLOL SUCCINATE
     Indication: HYPERTENSIVE CRISIS

REACTIONS (3)
  - Death [Fatal]
  - Multiple organ dysfunction syndrome [Fatal]
  - Drug interaction [Unknown]

NARRATIVE: CASE EVENT DATE: 2020
